FAERS Safety Report 12537400 (Version 1)
Quarter: 2016Q3

REPORT INFORMATION
  Report Type: Report from Study
  Country: PA (occurrence: PA)
  Receive Date: 20160707
  Receipt Date: 20160707
  Transmission Date: 20161109
  Serious: Yes (Other)
  Sender: FDA-Public Use
  Company Number: PA-ABBVIE-16P-125-1669133-00

PATIENT
  Sex: Male

DRUGS (1)
  1. ZEMPLAR [Suspect]
     Active Substance: PARICALCITOL
     Indication: HYPERPARATHYROIDISM SECONDARY
     Dosage: ZEMPLAR IS ADMINISTERED DURING HEMODIALYSIS
     Route: 042
     Dates: start: 20080801

REACTIONS (1)
  - Cataract [Recovering/Resolving]
